FAERS Safety Report 9210929 (Version 2)
Quarter: 2013Q4

REPORT INFORMATION
  Report Type: Spontaneous
  Country: US (occurrence: US)
  Receive Date: 20130404
  Receipt Date: 20131226
  Transmission Date: 20140711
  Serious: Yes (Other)
  Sender: FDA-Public Use
  Company Number: US-BAYER-2013-040255

PATIENT
  Age: 20 Year
  Sex: Female

DRUGS (5)
  1. YAZ [Suspect]
  2. HYDROCODONE W/APAP [Concomitant]
     Dosage: 5MG/500MG
     Route: 048
  3. PREVACID [Concomitant]
     Dosage: 30 MG, UNK
     Route: 048
  4. RANITIDINE [Concomitant]
     Dosage: 150 MG, UNK
     Route: 048
  5. PROCHLORPERAZINE [Concomitant]
     Dosage: 10 MG, UNK
     Route: 048

REACTIONS (7)
  - Gallbladder injury [None]
  - Cholecystitis [None]
  - Injury [None]
  - Pain [None]
  - Anxiety [None]
  - Anhedonia [None]
  - Fear of disease [None]
